FAERS Safety Report 16692015 (Version 1)
Quarter: 2019Q3

REPORT INFORMATION
  Report Type: Spontaneous
  Country: US (occurrence: US)
  Receive Date: 20190812
  Receipt Date: 20190812
  Transmission Date: 20191004
  Serious: Yes (Other)
  Sender: FDA-Public Use
  Company Number: US-BAYER-2019-143783

PATIENT
  Age: 97 Year
  Sex: Female

DRUGS (4)
  1. CITRACAL MAXIMUM [Suspect]
     Active Substance: CALCIUM CITRATE\CHOLECALCIFEROL
     Dosage: 3 DF, QD
     Route: 048
  2. MINERALS NOS;VITAMINS NOS [Concomitant]
     Active Substance: MINERALS\VITAMINS
  3. ST. JOSEPH LOW DOSE ASPIRIN [Suspect]
     Active Substance: ASPIRIN
     Indication: CEREBROVASCULAR ACCIDENT PROPHYLAXIS
     Dosage: UNK
  4. BAYER LOW DOSE [Suspect]
     Active Substance: ASPIRIN
     Indication: PAIN
     Dosage: UNK, PRN
     Route: 048

REACTIONS (6)
  - Increased tendency to bruise [Unknown]
  - Incorrect dosage administered [Unknown]
  - Product prescribing issue [Unknown]
  - Deafness [Recovered/Resolved]
  - Neovascular age-related macular degeneration [Unknown]
  - Blood pressure abnormal [Unknown]
